FAERS Safety Report 16165361 (Version 1)
Quarter: 2019Q2

REPORT INFORMATION
  Report Type: Spontaneous
  Country: IT (occurrence: IT)
  Receive Date: 20190405
  Receipt Date: 20190405
  Transmission Date: 20190711
  Serious: Yes (Other)
  Sender: FDA-Public Use
  Company Number: IT-ASCEND THERAPEUTICS-2065413

PATIENT
  Age: 31 Year
  Sex: Female

DRUGS (3)
  1. ESTROGEL [Suspect]
     Active Substance: ESTRADIOL
     Indication: PRODUCT USED FOR UNKNOWN INDICATION
     Route: 048
  2. MEDROXYPROGESTERONE ACETATE. [Suspect]
     Active Substance: MEDROXYPROGESTERONE ACETATE
  3. ACETYLSALICYCLE ACID?INDICATIONS FOR USE: PROPHYLAXIS. [Concomitant]

REACTIONS (1)
  - Cerebrovascular accident [Unknown]
